FAERS Safety Report 12225504 (Version 1)
Quarter: 2016Q1

REPORT INFORMATION
  Report Type: Spontaneous
  Country: US (occurrence: US)
  Receive Date: 20160331
  Receipt Date: 20160331
  Transmission Date: 20160526
  Serious: Yes (Other)
  Sender: FDA-Public Use
  Company Number: US-MDT-ADR-2016-00596

PATIENT
  Age: 62 Year
  Sex: Female
  Weight: 84 kg

DRUGS (3)
  1. MORPHINE DRUG, UNKNOWN [Suspect]
     Active Substance: MORPHINE
     Dosage: 0.5 MG/DAY
  2. BACLOFEN. [Suspect]
     Active Substance: BACLOFEN
     Route: 048
  3. COMPOUNDED BACLOFEN [Suspect]
     Active Substance: BACLOFEN
     Dosage: 1056 MCG/DAY
     Route: 037

REACTIONS (1)
  - Muscle spasticity [Not Recovered/Not Resolved]
